FAERS Safety Report 17063475 (Version 1)
Quarter: 2019Q4

REPORT INFORMATION
  Report Type: Spontaneous
  Country: US (occurrence: US)
  Receive Date: 20191122
  Receipt Date: 20191122
  Transmission Date: 20200122
  Serious: No
  Sender: FDA-Public Use
  Company Number: US-SUNOVION-2019SUN004972

PATIENT
  Sex: Male

DRUGS (1)
  1. LATUDA [Suspect]
     Active Substance: LURASIDONE HYDROCHLORIDE
     Dosage: 40 MG (80 MG CRUSHED OR BROKEN)
     Route: 048

REACTIONS (3)
  - Therapy cessation [Unknown]
  - Mood altered [Unknown]
  - Wrong technique in product usage process [Unknown]
